FAERS Safety Report 7068774-1 (Version None)
Quarter: 2010Q4

REPORT INFORMATION
  Report Type: 
  Country: None (occurrence: None)
  Receive Date: 20101028
  Receipt Date: 20101020
  Transmission Date: 20110411
  Serious: Yes (Other)
  Sender: FDA-Public Use
  Company Number: SE-B.I. PHARMACEUTICALS,INC./RIDGEFIELD-2010-SW-00321SW

PATIENT
  Sex: Male

DRUGS (1)
  1. PRADAXA [Suspect]
     Indication: KNEE ARTHROPLASTY
     Dates: start: 20100203, end: 20100212

REACTIONS (2)
  - HEMIPLEGIA [None]
  - POST PROCEDURAL STROKE [None]
